FAERS Safety Report 9032463 (Version 1)
Quarter: 2013Q1

REPORT INFORMATION
  Report Type: Report from Study
  Country: HU (occurrence: HU)
  Receive Date: 20130125
  Receipt Date: 20130125
  Transmission Date: 20140127
  Serious: Yes (Hospitalization)
  Sender: FDA-Public Use
  Company Number: HU-GLAXOSMITHKLINE-B0861257A

PATIENT
  Sex: Female

DRUGS (3)
  1. SERETIDE DISKUS [Suspect]
     Indication: ASTHMA
     Route: 055
     Dates: start: 201202, end: 201211
  2. THEOSPIREX [Concomitant]
     Indication: ASTHMA
     Dosage: 300MG PER DAY
     Dates: end: 201211
  3. VENTOLIN [Concomitant]
     Indication: ASTHMA

REACTIONS (2)
  - Dyspnoea [Not Recovered/Not Resolved]
  - Cough [Not Recovered/Not Resolved]
